FAERS Safety Report 4390543-1 (Version None)
Quarter: 2004Q2

REPORT INFORMATION
  Report Type: 
  Country: None (occurrence: None)
  Receive Date: 20040630
  Receipt Date: 20040618
  Transmission Date: 20050107
  Serious: Yes (Death, Hospitalization)
  Sender: FDA-Public Use
  Company Number: STA-AE-04-MTX-272

PATIENT
  Age: 72 Year
  Sex: Female

DRUGS (8)
  1. RHEUMATREX [Suspect]
     Indication: RHEUMATOID ARTHRITIS
     Dosage: 4 MG 1X PER 1 WK, ORAL
     Route: 048
     Dates: start: 20000729, end: 20020518
  2. PREDNISOLONE [Concomitant]
  3. RIMATIL (BUCILLAMINE) [Concomitant]
  4. ALFACALCIDOL (ALFACALCIDOL) [Concomitant]
  5. ASPARA-CA (ASPARTATE CALCIUM) [Concomitant]
  6. VONAFEC (DICLOFENAC SODIUM) [Concomitant]
  7. LOXOPROFEN (LOXOPROFEN) [Concomitant]
  8. DIDRONEL (ETIDRONATE SODIUM) [Concomitant]

REACTIONS (9)
  - HEPATIC ATROPHY [None]
  - HEPATIC NECROSIS [None]
  - HEPATITIS B [None]
  - HEPATITIS FULMINANT [None]
  - IMMUNOSUPPRESSION [None]
  - INFECTION [None]
  - LOSS OF CONSCIOUSNESS [None]
  - PNEUMONIA FUNGAL [None]
  - VIRAL MUTATION IDENTIFIED [None]
